FAERS Safety Report 9796503 (Version 1)
Quarter: 2014Q1

REPORT INFORMATION
  Report Type: Spontaneous
  Country: US (occurrence: US)
  Receive Date: 20140103
  Receipt Date: 20140103
  Transmission Date: 20141002
  Serious: No
  Sender: FDA-Public Use
  Company Number: US-TEVA-454381USA

PATIENT
  Age: 31 Year
  Sex: Female
  Weight: 47.22 kg

DRUGS (3)
  1. PLAN B ONE-STEP [Suspect]
     Indication: POST COITAL CONTRACEPTION
     Dosage: 1.5 MILLIGRAM DAILY;
     Route: 048
     Dates: start: 20131212, end: 20131212
  2. IBUPROFEN [Concomitant]
     Indication: HEADACHE
  3. IBUPROFEN [Concomitant]
     Indication: PAIN

REACTIONS (6)
  - Dysgeusia [Not Recovered/Not Resolved]
  - Abdominal distension [Not Recovered/Not Resolved]
  - Chromaturia [Not Recovered/Not Resolved]
  - Urine odour abnormal [Not Recovered/Not Resolved]
  - Breast enlargement [Not Recovered/Not Resolved]
  - Nausea [Not Recovered/Not Resolved]
